FAERS Safety Report 7334912-6 (Version None)
Quarter: 2011Q1

REPORT INFORMATION
  Report Type: 
  Country: None (occurrence: None)
  Receive Date: 20110307
  Receipt Date: 20110224
  Transmission Date: 20110831
  Serious: Yes (Hospitalization)
  Sender: FDA-Public Use
  Company Number: JP-JNJFOC-20110107065

PATIENT
  Sex: Female

DRUGS (1)
  1. CRAVIT [Suspect]
     Indication: PERICARDITIS
     Route: 048

REACTIONS (2)
  - ASTHMA [None]
  - DYSPNOEA [None]
